FAERS Safety Report 9405984 (Version 1)
Quarter: 2013Q3

REPORT INFORMATION
  Report Type: Spontaneous
  Country: CN (occurrence: CN)
  Receive Date: 20130717
  Receipt Date: 20130717
  Transmission Date: 20140515
  Serious: Yes (Other)
  Sender: FDA-Public Use
  Company Number: CN-PFIZER INC-2013208198

PATIENT
  Age: 70 Year
  Sex: Male
  Weight: 75.5 kg

DRUGS (6)
  1. LIPITOR [Suspect]
     Indication: MYOCARDIAL INFARCTION
     Dosage: 80 MG, SINGLE
     Route: 048
     Dates: start: 20130623, end: 20130623
  2. LIPITOR [Suspect]
     Dosage: 40 MG, ONCE DAILY
     Route: 048
     Dates: start: 20130624
  3. NITRIC ACID [Concomitant]
     Dosage: UNK
     Route: 048
     Dates: start: 20130623
  4. CEFALOTIN [Concomitant]
     Dosage: UNK
     Route: 048
     Dates: start: 20130623
  5. CLOPIDOGREL [Concomitant]
     Dosage: 75 MG, ONCE DAILY
     Route: 048
     Dates: start: 20130623
  6. ACETYLSALICYLIC ACID [Concomitant]
     Dosage: 100 MG, ONCE DAILY
     Route: 048
     Dates: start: 20130623

REACTIONS (2)
  - Dermatitis exfoliative generalised [Unknown]
  - Rash [Unknown]
